FAERS Safety Report 8386959-9 (Version None)
Quarter: 2012Q2

REPORT INFORMATION
  Report Type: 
  Country: None (occurrence: None)
  Receive Date: 20120523
  Receipt Date: 20120514
  Transmission Date: 20120825
  Serious: Yes (Hospitalization)
  Sender: FDA-Public Use
  Company Number: 2012-001847

PATIENT
  Age: 75 Year
  Sex: Female

DRUGS (2)
  1. ACTONEL [Suspect]
     Indication: OSTEOPOROSIS
     Dosage: 35 MG ONCE WEEKLY, ORAL
     Route: 048
     Dates: start: 20061201, end: 20080101
  2. AREDIA [Suspect]
     Indication: OSTEOPOROSIS
     Dosage: 60 MG, SINGLE DOSE, INTRAVENOUS
     Route: 042
     Dates: start: 20071001, end: 20071001

REACTIONS (3)
  - FRACTURE NONUNION [None]
  - BONE PAIN [None]
  - FEMUR FRACTURE [None]
